FAERS Safety Report 4349102-9 (Version None)
Quarter: 2004Q2

REPORT INFORMATION
  Report Type: 
  Country: None (occurrence: None)
  Receive Date: 20040423
  Receipt Date: 20040402
  Transmission Date: 20050107
  Serious: Yes (Other)
  Sender: FDA-Public Use
  Company Number: 430006X04ITA

PATIENT
  Age: 57 Year
  Sex: Male

DRUGS (4)
  1. NOVANTRONE [Suspect]
     Indication: ACUTE PROMYELOCYTIC LEUKAEMIA
     Dosage: 20 MG, 1 IN 1 DAYS, NOT
     Dates: start: 20031009, end: 20031013
  2. TRETINOIN [Suspect]
     Indication: ACUTE PROMYELOCYTIC LEUKAEMIA
     Dosage: 100 MG, 1 IN 1 DAYS, NOT
     Dates: start: 20031009, end: 20031023
  3. ANTINEOPLASTIC AND IMMUNOSUPPRESSIVE AGENTS [Suspect]
     Dosage: NOT REPORTED, NOT REPORTED
  4. ETOPOSIDE [Suspect]
     Indication: ACUTE PROMYELOCYTIC LEUKAEMIA
     Dosage: 200 MG, 1 IN 1 DAYS, NOT
     Dates: start: 20031009, end: 20031013

REACTIONS (3)
  - FEBRILE NEUTROPENIA [None]
  - LEUKOPENIA [None]
  - THROMBOCYTOPENIA [None]
